FAERS Safety Report 17470928 (Version 2)
Quarter: 2021Q1

REPORT INFORMATION
  Report Type: Spontaneous
  Country: US (occurrence: US)
  Receive Date: 20200227
  Receipt Date: 20210302
  Transmission Date: 20210419
  Serious: Yes (Other)
  Sender: FDA-Public Use
  Company Number: US-ASTRAZENECA-2020SE26170

PATIENT
  Age: 24122 Day
  Sex: Male
  Weight: 122.5 kg

DRUGS (40)
  1. TEMAZEPAM. [Concomitant]
     Active Substance: TEMAZEPAM
  2. OXYCODONE [Concomitant]
     Active Substance: OXYCODONE
  3. KADIAN [Concomitant]
     Active Substance: MORPHINE SULFATE
  4. ZOLPIDEM [Concomitant]
     Active Substance: ZOLPIDEM TARTRATE
  5. BENZONATATE. [Concomitant]
     Active Substance: BENZONATATE
  6. CLOBEX [Concomitant]
     Active Substance: CLOBETASOL PROPIONATE
  7. SYMBICORT [Concomitant]
     Active Substance: BUDESONIDE\FORMOTEROL FUMARATE DIHYDRATE
  8. FOLIC ACID. [Concomitant]
     Active Substance: FOLIC ACID
     Indication: SUPPLEMENTATION THERAPY
     Dates: start: 2014
  9. PROCTOSOL [Concomitant]
  10. BESIVANCE [Concomitant]
     Active Substance: BESIFLOXACIN
  11. PLAVIX [Concomitant]
     Active Substance: CLOPIDOGREL BISULFATE
  12. FUROSEMIDE. [Concomitant]
     Active Substance: FUROSEMIDE
     Indication: DIURETIC THERAPY
     Dates: start: 2012
  13. ATORVASTATIN [Concomitant]
     Active Substance: ATORVASTATIN
     Indication: BLOOD CHOLESTEROL ABNORMAL
     Dates: start: 2014
  14. ALLOPURINOL. [Concomitant]
     Active Substance: ALLOPURINOL
  15. LOSARTAN. [Concomitant]
     Active Substance: LOSARTAN
  16. TAMSULOSIN [Concomitant]
     Active Substance: TAMSULOSIN
  17. PHENTERMINE. [Concomitant]
     Active Substance: PHENTERMINE
  18. TACLONEX [Concomitant]
     Active Substance: BETAMETHASONE DIPROPIONATE\CALCIPOTRIENE\CALCIPOTRIENE HYDRATE
  19. TYLENOL [Concomitant]
     Active Substance: ACETAMINOPHEN
     Indication: SUPPLEMENTATION THERAPY
  20. TUSSIONEX PENNKINETIC [Concomitant]
     Active Substance: CHLORPHENIRAMINE\HYDROCODONE
  21. LIDODERM [Concomitant]
     Active Substance: LIDOCAINE
  22. NEXIUM [Suspect]
     Active Substance: ESOMEPRAZOLE MAGNESIUM
     Route: 048
     Dates: start: 2001, end: 2018
  23. AZITHROMYCIN ANHYDROUS. [Concomitant]
     Active Substance: AZITHROMYCIN ANHYDROUS
     Indication: ANTIBIOTIC THERAPY
     Dates: start: 2010
  24. VITAMIN [Concomitant]
     Active Substance: VITAMINS
     Indication: SUPPLEMENTATION THERAPY
  25. MYLANTA [Concomitant]
     Active Substance: ALUMINUM HYDROXIDE\DIMETHICONE\MAGNESIUM HYDROXIDE
  26. CELECOXIB. [Concomitant]
     Active Substance: CELECOXIB
  27. DESONIDE. [Concomitant]
     Active Substance: DESONIDE
  28. SINGULAIR [Concomitant]
     Active Substance: MONTELUKAST SODIUM
  29. ZANTAC [Concomitant]
     Active Substance: RANITIDINE HYDROCHLORIDE
  30. CIPROFLOXACIN. [Concomitant]
     Active Substance: CIPROFLOXACIN
  31. NASACORT [Concomitant]
     Active Substance: TRIAMCINOLONE ACETONIDE
  32. BROVANA [Concomitant]
     Active Substance: ARFORMOTEROL TARTRATE
  33. NEXIUM [Suspect]
     Active Substance: ESOMEPRAZOLE MAGNESIUM
     Route: 048
     Dates: start: 1990
  34. AMOXICILLIN. [Concomitant]
     Active Substance: AMOXICILLIN
     Indication: ANTIBIOTIC THERAPY
     Dates: start: 2011
  35. DUREZOL [Concomitant]
     Active Substance: DIFLUPREDNATE
  36. CYCLOBENZAPRINE. [Concomitant]
     Active Substance: CYCLOBENZAPRINE
  37. BETAMETHASONE. [Concomitant]
     Active Substance: BETAMETHASONE
  38. CEFUROXIME. [Concomitant]
     Active Substance: CEFUROXIME
  39. MERIDIA [Concomitant]
     Active Substance: SIBUTRAMINE HYDROCHLORIDE
  40. FLECTOR [Concomitant]
     Active Substance: DICLOFENAC EPOLAMINE

REACTIONS (2)
  - Renal failure [Not Recovered/Not Resolved]
  - Chronic kidney disease [Unknown]

NARRATIVE: CASE EVENT DATE: 20151209
